FAERS Safety Report 18264002 (Version 1)
Quarter: 2020Q3

REPORT INFORMATION
  Report Type: Spontaneous
  Country: CN (occurrence: CN)
  Receive Date: 20200914
  Receipt Date: 20200914
  Transmission Date: 20201103
  Serious: Yes (Hospitalization)
  Sender: FDA-Public Use
  Company Number: CN-ABBVIE-20P-035-3565063-00

PATIENT
  Age: 72 Year
  Sex: Male

DRUGS (3)
  1. ACTOS [Concomitant]
     Active Substance: PIOGLITAZONE HYDROCHLORIDE
     Indication: HYPERGLYCAEMIA
     Dosage: DAILY DOSE 15 MILLIGRAM
     Route: 048
     Dates: start: 20200816, end: 20200828
  2. ATORVASTATIN CALCIUM. [Suspect]
     Active Substance: ATORVASTATIN CALCIUM
     Indication: HYPERCHOLESTEROLAEMIA
     Dosage: DAILY DOSE 20 MILLIGRAM,
     Route: 048
     Dates: start: 20200815, end: 20200825
  3. LIPANTHYL [Suspect]
     Active Substance: FENOFIBRATE
     Indication: HYPERTRIGLYCERIDAEMIA
     Dosage: DAILY DOSE 0.2 GRAM
     Route: 048
     Dates: start: 20200816, end: 20200828

REACTIONS (2)
  - Drug-induced liver injury [Recovering/Resolving]
  - Muscle enzyme increased [Recovering/Resolving]

NARRATIVE: CASE EVENT DATE: 20200828
